FAERS Safety Report 8612732-X (Version None)
Quarter: 2012Q3

REPORT INFORMATION
  Report Type: 
  Country: None (occurrence: None)
  Receive Date: 20120822
  Receipt Date: 20110822
  Transmission Date: 20120928
  Serious: No
  Sender: FDA-Public Use
  Company Number: US-ASTRAZENECA-2011SE50565

PATIENT
  Age: 61 Year
  Sex: Male
  Weight: 59 kg

DRUGS (4)
  1. IPATROPIUM BROMIDE AND ALBUTEROL [Concomitant]
  2. GENERIC DURANEB [Concomitant]
  3. SYMBICORT [Suspect]
     Indication: CHRONIC OBSTRUCTIVE PULMONARY DISEASE
     Dosage: 160/4.5 MCG TWO TIMES A DAY
     Route: 055
     Dates: start: 20100101, end: 20110801
  4. SYMBICORT [Suspect]
     Dosage: 2 PUFFS TWO TIMES A DAY
     Route: 055
     Dates: start: 20110819

REACTIONS (1)
  - DYSPNOEA [None]
